FAERS Safety Report 4399434-3 (Version None)
Quarter: 2004Q3

REPORT INFORMATION
  Report Type: 
  Country: None (occurrence: None)
  Receive Date: 20040712
  Receipt Date: 20040629
  Transmission Date: 20050211
  Serious: Yes (Hospitalization, Other)
  Sender: FDA-Public Use
  Company Number: 2004043492

PATIENT
  Age: 39 Year
  Sex: Female
  Weight: 46.7205 kg

DRUGS (6)
  1. NEOSPORIN [Suspect]
     Indication: HERPES SIMPLEX
     Dosage: SMALL AMOUNT SIX TIMES DAILY, ORAL
     Route: 048
     Dates: start: 20040601, end: 20040623
  2. NEOSPORIN [Suspect]
  3. CLARITHROMYCIN [Concomitant]
  4. LEVOFLOXACIN [Concomitant]
  5. ENDAL (GUAIFENESIN, PHENYLEPHRINE HYDROHCLORIDE) [Concomitant]
  6. HYDROCODONE BITARTRATE [Concomitant]

REACTIONS (10)
  - CONVULSION [None]
  - DEHYDRATION [None]
  - DISORIENTATION [None]
  - DYSACUSIS [None]
  - FEAR [None]
  - LOSS OF CONSCIOUSNESS [None]
  - MEDICATION ERROR [None]
  - NERVOUSNESS [None]
  - TREATMENT NONCOMPLIANCE [None]
  - VISION BLURRED [None]
